FAERS Safety Report 25857048 (Version 1)
Quarter: 2025Q3

REPORT INFORMATION
  Report Type: Report from Study
  Country: KR (occurrence: KR)
  Receive Date: 20250929
  Receipt Date: 20250929
  Transmission Date: 20251021
  Serious: Yes (Hospitalization)
  Sender: CELLTRION
  Company Number: KR-CELLTRION INC.-2025KR033642

PATIENT

DRUGS (41)
  1. INFLIXIMAB-DYYB [Suspect]
     Active Substance: INFLIXIMAB-DYYB
     Indication: Crohn^s disease
     Dosage: 120 MG ONCE IN TWO WEEKS
     Route: 058
     Dates: start: 20241125
  2. INFLIXIMAB-DYYB [Suspect]
     Active Substance: INFLIXIMAB-DYYB
     Dosage: 120 MG ONCE IN TWO WEEKS
     Route: 058
     Dates: start: 20241209
  3. INFLIXIMAB-DYYB [Suspect]
     Active Substance: INFLIXIMAB-DYYB
     Dosage: 120 MG ONCE IN TWO WEEKS
     Route: 058
     Dates: start: 20241223
  4. INFLIXIMAB-DYYB [Suspect]
     Active Substance: INFLIXIMAB-DYYB
     Dosage: 120 MG ONCE IN TWO WEEKS
     Route: 058
     Dates: start: 20250106
  5. INFLIXIMAB-DYYB [Suspect]
     Active Substance: INFLIXIMAB-DYYB
     Dosage: 120 MG ONCE IN TWO WEEKS
     Route: 058
     Dates: start: 20250120
  6. INFLIXIMAB-DYYB [Suspect]
     Active Substance: INFLIXIMAB-DYYB
     Dosage: 120 MG ONCE IN TWO WEEKS
     Route: 058
     Dates: start: 20250203
  7. INFLIXIMAB-DYYB [Suspect]
     Active Substance: INFLIXIMAB-DYYB
     Dosage: 120 MG ONCE IN TWO WEEKS
     Route: 058
     Dates: start: 20250227
  8. INFLIXIMAB-DYYB [Suspect]
     Active Substance: INFLIXIMAB-DYYB
     Dosage: 120 MG ONCE IN TWO WEEKS
     Route: 058
     Dates: start: 20250313
  9. INFLIXIMAB-DYYB [Suspect]
     Active Substance: INFLIXIMAB-DYYB
     Dosage: 120 MG ONCE IN TWO WEEKS
     Route: 058
     Dates: start: 20250327
  10. INFLIXIMAB-DYYB [Suspect]
     Active Substance: INFLIXIMAB-DYYB
     Dosage: 120 MG ONCE IN TWO WEEKS
     Route: 058
     Dates: start: 20250410
  11. INFLIXIMAB-DYYB [Suspect]
     Active Substance: INFLIXIMAB-DYYB
     Dosage: 120 MG ONCE IN TWO WEEKS
     Route: 058
     Dates: start: 20250424
  12. CHLORPHENIRAMINE MALEATE [Concomitant]
     Active Substance: CHLORPHENIRAMINE MALEATE
     Indication: Premedication
     Route: 042
     Dates: start: 20241008, end: 20241008
  13. CHLORPHENIRAMINE MALEATE [Concomitant]
     Active Substance: CHLORPHENIRAMINE MALEATE
     Route: 042
     Dates: start: 20241024, end: 20241024
  14. HYDROCORTISONE SODIUM SUCCINATE [Concomitant]
     Active Substance: HYDROCORTISONE SODIUM SUCCINATE
     Indication: Premedication
     Route: 042
     Dates: start: 20241008, end: 20241008
  15. HYDROCORTISONE SODIUM SUCCINATE [Concomitant]
     Active Substance: HYDROCORTISONE SODIUM SUCCINATE
     Route: 042
     Dates: start: 20241024, end: 20241024
  16. LEVOTHYROXINE SODIUM [Concomitant]
     Active Substance: LEVOTHYROXINE SODIUM
     Indication: Hypothyroidism
     Route: 048
     Dates: start: 20241008
  17. CIPROFLOXACIN HYDROCHLORIDE [Concomitant]
     Active Substance: CIPROFLOXACIN HYDROCHLORIDE
     Indication: Hypothyroidism
     Route: 048
     Dates: start: 20241010
  18. GABAPENTIN [Concomitant]
     Active Substance: GABAPENTIN
     Indication: Neuropathy peripheral
     Route: 048
     Dates: start: 20241125, end: 20250113
  19. TEGOPRAZAN [Concomitant]
     Active Substance: TEGOPRAZAN
     Indication: Gastrooesophageal reflux disease
     Route: 048
     Dates: start: 20241125, end: 20250113
  20. SODIUM ALGINATE [Concomitant]
     Active Substance: SODIUM ALGINATE
     Indication: Gastrooesophageal reflux disease
     Route: 048
     Dates: start: 20241125, end: 20250113
  21. MAGNESIUM OXIDE [Concomitant]
     Active Substance: MAGNESIUM OXIDE
     Indication: Gastrooesophageal reflux disease
     Route: 048
     Dates: start: 20250424
  22. MAGNESIUM HYDROXIDE [Concomitant]
     Active Substance: MAGNESIUM HYDROXIDE
     Indication: Gastrooesophageal reflux disease
     Route: 048
     Dates: start: 20241024, end: 20241106
  23. MIDAZOLAM [Concomitant]
     Active Substance: MIDAZOLAM
     Indication: Oesophagogastroduodenoscopy
     Route: 042
     Dates: start: 20250115, end: 20250115
  24. MEPERIDINE HYDROCHLORIDE [Concomitant]
     Active Substance: MEPERIDINE HYDROCHLORIDE
     Indication: Oesophagogastroduodenoscopy
     Route: 042
     Dates: start: 20250115, end: 20250115
  25. CIMETROPIUM BROMIDE [Concomitant]
     Active Substance: CIMETROPIUM BROMIDE
     Indication: Oesophagogastroduodenoscopy
     Route: 042
     Dates: start: 20250115, end: 20250115
  26. ESOMEPRAZOLE SODIUM [Concomitant]
     Active Substance: ESOMEPRAZOLE SODIUM
     Indication: Oesophagogastroduodenoscopy
     Route: 042
     Dates: start: 20250115, end: 20250116
  27. ESOMEPRAZOLE MAGNESIUM [Concomitant]
     Active Substance: ESOMEPRAZOLE MAGNESIUM
     Indication: Gastrooesophageal reflux disease
     Route: 048
     Dates: start: 20250118, end: 20250118
  28. METRONIDAZOLE [Concomitant]
     Active Substance: METRONIDAZOLE
     Indication: Crohn^s disease
     Route: 042
     Dates: start: 20241007, end: 20241010
  29. METRONIDAZOLE [Concomitant]
     Active Substance: METRONIDAZOLE
     Route: 048
     Dates: start: 20241010, end: 20241023
  30. METRONIDAZOLE [Concomitant]
     Active Substance: METRONIDAZOLE
     Route: 042
     Dates: start: 20250131, end: 20250202
  31. CIPROFLOXACIN HYDROCHLORIDE [Concomitant]
     Active Substance: CIPROFLOXACIN HYDROCHLORIDE
     Indication: Crohn^s disease
     Route: 048
     Dates: start: 20241010, end: 20241120
  32. CIPROFLOXACIN HYDROCHLORIDE [Concomitant]
     Active Substance: CIPROFLOXACIN HYDROCHLORIDE
     Route: 048
     Dates: start: 20250109, end: 20250122
  33. METRONIDAZOLE [Concomitant]
     Active Substance: METRONIDAZOLE
     Indication: Crohn^s disease
     Route: 042
     Dates: start: 20241007, end: 20241010
  34. METRONIDAZOLE [Concomitant]
     Active Substance: METRONIDAZOLE
     Route: 042
     Dates: start: 20250131, end: 20250201
  35. CEFTRIAXONE SODIUM [Concomitant]
     Active Substance: CEFTRIAXONE SODIUM
     Indication: Crohn^s disease
     Route: 042
     Dates: start: 20241007, end: 20241010
  36. CEFTRIAXONE SODIUM [Concomitant]
     Active Substance: CEFTRIAXONE SODIUM
     Route: 042
     Dates: start: 20250113, end: 20250115
  37. ESOMEPRAZOLE SODIUM [Concomitant]
     Active Substance: ESOMEPRAZOLE SODIUM
     Indication: Crohn^s disease
     Route: 042
     Dates: start: 20250115, end: 20250117
  38. PREGABALIN [Concomitant]
     Active Substance: PREGABALIN
     Indication: Crohn^s disease
     Route: 048
     Dates: start: 20250117
  39. BISACODYL [Concomitant]
     Active Substance: BISACODYL
     Indication: Crohn^s disease
     Dates: start: 20250130, end: 20250130
  40. FAMOTIDINE [Concomitant]
     Active Substance: FAMOTIDINE
     Indication: Crohn^s disease
     Route: 042
     Dates: start: 20250114, end: 20250114
  41. ACETAMINOPHEN\TRAMADOL HYDROCHLORIDE [Concomitant]
     Active Substance: ACETAMINOPHEN\TRAMADOL HYDROCHLORIDE
     Indication: Crohn^s disease
     Route: 048
     Dates: start: 20250209, end: 20250215

REACTIONS (2)
  - Crohn^s disease [Recovered/Resolved]
  - C-reactive protein increased [Recovered/Resolved]

NARRATIVE: CASE EVENT DATE: 20250113
